FAERS Safety Report 6091381-4 (Version None)
Quarter: 2009Q1

REPORT INFORMATION
  Report Type: 
  Country: None (occurrence: None)
  Receive Date: 20090225
  Receipt Date: 20081110
  Transmission Date: 20090719
  Serious: No
  Sender: FDA-Public Use
  Company Number: A0755592A

PATIENT
  Sex: Female

DRUGS (1)
  1. VERAMYST [Suspect]
     Route: 065
     Dates: start: 20080901

REACTIONS (1)
  - SINUSITIS [None]
